FAERS Safety Report 8847964 (Version 1)
Quarter: 2012Q4

REPORT INFORMATION
  Report Type: 
  Country: US (occurrence: US)
  Receive Date: 20121018
  Receipt Date: 20121018
  Transmission Date: 20130627
  Serious: Yes (Other)
  Sender: FDA-Public Use
  Company Number: US-ROCHE-1111118

PATIENT
  Sex: Male

DRUGS (1)
  1. NUTROPIN [Suspect]
     Indication: DWARFISM
     Route: 058

REACTIONS (8)
  - Neoplasm [Unknown]
  - Neoplasm [Unknown]
  - Neoplasm [Unknown]
  - Haemorrhage [Unknown]
  - Contusion [Unknown]
  - Injection site pain [Unknown]
  - Decreased appetite [Recovering/Resolving]
  - Cardiac murmur [Unknown]
